FAERS Safety Report 13093237 (Version 1)
Quarter: 2017Q1

REPORT INFORMATION
  Report Type: Spontaneous
  Country: DE (occurrence: DE)
  Receive Date: 20170106
  Receipt Date: 20170106
  Transmission Date: 20170428
  Serious: Yes (Hospitalization, Disabling, Other)
  Sender: FDA-Public Use
  Company Number: DE-JNJFOC-20170103120

PATIENT
  Sex: Female

DRUGS (6)
  1. IMODIUM AKUT [Suspect]
     Active Substance: LOPERAMIDE
     Indication: DIARRHOEA
     Route: 065
     Dates: start: 20151125
  2. METHIONIN [Concomitant]
     Active Substance: METHIONINE
     Route: 065
  3. MYLEPSINUM [Concomitant]
     Active Substance: PRIMIDONE
     Route: 065
  4. IMODIUM AKUT [Suspect]
     Active Substance: LOPERAMIDE
     Route: 065
  5. LIORESAL [Concomitant]
     Active Substance: BACLOFEN
     Route: 065
  6. CYMBALTA [Concomitant]
     Active Substance: DULOXETINE HYDROCHLORIDE
     Route: 065

REACTIONS (3)
  - Pyrexia [Recovered/Resolved]
  - Infrequent bowel movements [Recovered/Resolved]
  - Immobile [Recovered/Resolved]

NARRATIVE: CASE EVENT DATE: 20151125
